FAERS Safety Report 6463258-3 (Version None)
Quarter: 2009Q4

REPORT INFORMATION
  Report Type: 
  Country: None (occurrence: None)
  Receive Date: 20091130
  Receipt Date: 20090610
  Transmission Date: 20100525
  Serious: Yes (Other)
  Sender: FDA-Public Use
  Company Number: US-AMGEN-QUU351056

PATIENT
  Sex: Female
  Weight: 83.5 kg

DRUGS (8)
  1. ENBREL [Suspect]
     Indication: RHEUMATOID ARTHRITIS
     Route: 058
     Dates: start: 20060101, end: 20070101
  2. REMICADE [Suspect]
     Route: 042
     Dates: start: 20050101, end: 20090101
  3. METHOTREXATE [Concomitant]
     Dates: start: 20060101, end: 20060101
  4. LEFLUNOMIDE [Concomitant]
     Dates: start: 20060101
  5. PREDNISONE [Concomitant]
     Dates: start: 20050601
  6. METOPROLOL [Concomitant]
  7. ESTROGENS CONJUGATED [Concomitant]
  8. FUROSEMIDE [Concomitant]

REACTIONS (1)
  - MYCOSIS FUNGOIDES [None]
